FAERS Safety Report 7379229-9 (Version None)
Quarter: 2011Q1

REPORT INFORMATION
  Report Type: 
  Country: None (occurrence: None)
  Receive Date: 20110328
  Receipt Date: 20110321
  Transmission Date: 20110831
  Serious: Yes (Other)
  Sender: FDA-Public Use
  Company Number: US-RB-024357-11

PATIENT
  Age: 31 Year
  Sex: Female

DRUGS (1)
  1. SUBOXONE [Suspect]
     Indication: PRODUCT USED FOR UNKNOWN INDICATION
     Dosage: DOSING INFORMATION UNKNOWN
     Route: 065

REACTIONS (9)
  - COLLAPSE OF LUNG [None]
  - UTERINE CANCER [None]
  - DRUG DEPENDENCE [None]
  - PAIN [None]
  - COLD SWEAT [None]
  - HEPATITIS C [None]
  - CERVIX CARCINOMA [None]
  - SEPSIS [None]
  - HYPERHIDROSIS [None]
